FAERS Safety Report 9745656 (Version 1)
Quarter: 2013Q4

REPORT INFORMATION
  Report Type: Report from Study
  Country: DE (occurrence: DE)
  Receive Date: 20131211
  Receipt Date: 20131211
  Transmission Date: 20140711
  Serious: Yes (Death, Hospitalization)
  Sender: FDA-Public Use
  Company Number: DE-ROCHE-1318072

PATIENT
  Age: 67 Year
  Sex: Female
  Weight: 117 kg

DRUGS (7)
  1. BEVACIZUMAB [Suspect]
     Indication: COLORECTAL CANCER METASTATIC
     Route: 065
  2. FLECAINIDE [Concomitant]
     Indication: ARRHYTHMIA
     Route: 048
  3. NOVAMINSULFON [Concomitant]
     Indication: PAIN
     Route: 048
  4. PANTOZOL (GERMANY) [Concomitant]
     Route: 048
  5. MARCUMAR [Concomitant]
     Indication: ATRIAL FIBRILLATION
     Dosage: AS REQUIRED
     Route: 048
  6. OPIPRAMOL [Concomitant]
     Indication: DEPRESSION
     Route: 048
  7. FUROSEMIDE [Concomitant]

REACTIONS (5)
  - General physical health deterioration [Fatal]
  - Malignant neoplasm progression [Fatal]
  - Pneumonia [Recovered/Resolved]
  - Laboratory test abnormal [Not Recovered/Not Resolved]
  - Abdominal pain upper [Recovering/Resolving]
